FAERS Safety Report 10211047 (Version 2)
Quarter: 2014Q2

REPORT INFORMATION
  Report Type: Spontaneous
  Country: JP (occurrence: None)
  Receive Date: 20140528
  Receipt Date: 20140619
  Transmission Date: 20141212
  Serious: Yes (Death, Other)
  Sender: FDA-Public Use
  Company Number: 2014-19587

PATIENT
  Age: 88 Year
  Sex: Male

DRUGS (1)
  1. EYLEA [Suspect]
     Indication: AGE-RELATED MACULAR DEGENERATION
     Route: 031
     Dates: start: 20130220, end: 20140410

REACTIONS (1)
  - Death [None]
